FAERS Safety Report 16222378 (Version 1)
Quarter: 2019Q2

REPORT INFORMATION
  Report Type: Other
  Country: US (occurrence: US)
  Receive Date: 20190422
  Receipt Date: 20190422
  Transmission Date: 20190711
  Serious: Yes (Hospitalization, Other)
  Sender: FDA-Public Use
  Company Number: US-NAVINTA LLC-000069

PATIENT
  Age: 54 Year
  Sex: Female

DRUGS (1)
  1. ROPIVACAINE. [Suspect]
     Active Substance: ROPIVACAINE HYDROCHLORIDE
     Indication: PAIN
     Dosage: 6MG/HOUR
     Route: 053

REACTIONS (2)
  - Anaphylactic reaction [Recovering/Resolving]
  - Horner^s syndrome [Recovering/Resolving]
